FAERS Safety Report 24101258 (Version 2)
Quarter: 2024Q3

REPORT INFORMATION
  Report Type: Spontaneous
  Country: US (occurrence: US)
  Receive Date: 20240717
  Receipt Date: 20240911
  Transmission Date: 20241017
  Serious: No
  Sender: ROCHE
  Company Number: US-ROCHE-10000026129

PATIENT
  Age: 18 Year
  Weight: 58.97 kg

DRUGS (2)
  1. XOLAIR [Suspect]
     Active Substance: OMALIZUMAB
     Indication: Food allergy
     Dosage: TAKES 2 AUTO INJECTORS
     Route: 058
     Dates: start: 20240610
  2. XOLAIR [Suspect]
     Active Substance: OMALIZUMAB
     Route: 058
     Dates: start: 20240610

REACTIONS (5)
  - Device breakage [Unknown]
  - No adverse event [Unknown]
  - Wrong technique in product usage process [Unknown]
  - Product complaint [Unknown]
  - Device issue [Unknown]

NARRATIVE: CASE EVENT DATE: 20240705
